FAERS Safety Report 9163978 (Version 2)
Quarter: 2013Q2

REPORT INFORMATION
  Report Type: Spontaneous
  Country: AU (occurrence: AU)
  Receive Date: 20130314
  Receipt Date: 20130419
  Transmission Date: 20140414
  Serious: Yes (Death, Other)
  Sender: FDA-Public Use
  Company Number: AU-PFIZER INC-2013081026

PATIENT
  Age: 48 Year
  Sex: Female
  Weight: 97 kg

DRUGS (1)
  1. REVATIO [Suspect]
     Indication: PORTOPULMONARY HYPERTENSION
     Dosage: 20 (UNITS UNSPECIFIED), 3X/DAY
     Route: 048

REACTIONS (8)
  - Multi-organ failure [Fatal]
  - Pneumonia [Fatal]
  - Chronic hepatic failure [Fatal]
  - Renal failure chronic [Fatal]
  - Vena cava injury [Unknown]
  - Venous haemorrhage [Unknown]
  - Cardiac arrest [Unknown]
  - Hypovolaemia [Unknown]
